FAERS Safety Report 5675830-9 (Version None)
Quarter: 2008Q1

REPORT INFORMATION
  Report Type: 
  Country: None (occurrence: None)
  Receive Date: 20080321
  Receipt Date: 20080312
  Transmission Date: 20080703
  Serious: Yes (Other)
  Sender: FDA-Public Use
  Company Number: US-JNJFOC-20080303499

PATIENT
  Sex: Female

DRUGS (5)
  1. REMICADE [Suspect]
     Indication: CROHN'S DISEASE
     Route: 042
  2. PENTASA [Concomitant]
     Indication: CROHN'S DISEASE
  3. IRON [Concomitant]
  4. MULTIVITAMEN [Concomitant]
  5. INSULIN [Concomitant]
     Indication: DIABETES MELLITUS

REACTIONS (2)
  - CHEST X-RAY ABNORMAL [None]
  - WEIGHT INCREASED [None]
